FAERS Safety Report 8728972 (Version 2)
Quarter: 2013Q4

REPORT INFORMATION
  Report Type: Spontaneous
  Country: US (occurrence: US)
  Receive Date: 20120817
  Receipt Date: 20131024
  Transmission Date: 20140711
  Serious: Yes (Other)
  Sender: FDA-Public Use
  Company Number: US-BRISTOL-MYERS SQUIBB COMPANY-16281511

PATIENT
  Age: 63 Year
  Sex: Female
  Weight: 91 kg

DRUGS (3)
  1. SPRYCEL [Suspect]
     Indication: CHRONIC MYELOID LEUKAEMIA
     Route: 048
  2. CIPROFLOXACIN [Concomitant]
     Dates: start: 20111126
  3. ENOXAPARIN [Concomitant]

REACTIONS (10)
  - Heart valve incompetence [Recovered/Resolved]
  - Gastrooesophageal reflux disease [Unknown]
  - Vomiting [Unknown]
  - Sinusitis [Unknown]
  - Oropharyngeal pain [Unknown]
  - Dyspnoea [Unknown]
  - Weight fluctuation [Unknown]
  - Pharyngeal oedema [Unknown]
  - Dysphagia [Unknown]
  - Musculoskeletal pain [Unknown]
